FAERS Safety Report 8912031 (Version 2)
Quarter: 2013Q1

REPORT INFORMATION
  Report Type: Spontaneous
  Country: US (occurrence: US)
  Receive Date: 20121116
  Receipt Date: 20130103
  Transmission Date: 20140127
  Serious: Yes (Hospitalization, Other)
  Sender: FDA-Public Use
  Company Number: US-PFIZER INC-2012285420

PATIENT
  Age: 49 Year
  Sex: Female
  Weight: 48.07 kg

DRUGS (25)
  1. INLYTA [Suspect]
     Indication: RENAL CELL CARCINOMA
     Dosage: 5 MG, 2X/DAY
     Dates: start: 201209, end: 20121007
  2. FENTANYL [Concomitant]
     Dosage: 50 UG Q 72HRS
  3. DILAUDID [Concomitant]
     Indication: BREAKTHROUGH PAIN
     Dosage: 4 MG, AS NEEDED
  4. LEXAPRO [Concomitant]
     Indication: DEPRESSION
     Dosage: 10 MG, DAILY
  5. ZOFRAN [Concomitant]
     Indication: NAUSEA
     Dosage: 8 MG, Q AM
  6. MAGIC MOUTHWASH [Concomitant]
     Dosage: PRN
  7. LABETALOL [Concomitant]
     Dosage: 200 MG, 2 TABS BID
  8. PANTOPRAZOLE [Concomitant]
     Dosage: 40 MG, 2X/DAY
  9. LISINOPRIL [Concomitant]
     Dosage: 20 MG, AS NEEDED
  10. HYDROCHLOROTHIAZIDE [Concomitant]
     Dosage: 25 MG, DAILY
  11. GRANISETRON [Concomitant]
  12. ATIVAN [Concomitant]
  13. AMBIEN [Concomitant]
     Indication: SLEEP DISORDER
     Dosage: 5 MG, AS NEEDED
     Dates: start: 20120326
  14. MARINOL [Concomitant]
     Indication: DECREASED APPETITE
     Dosage: 2.5 MG, 2X/DAY
     Dates: start: 20121025
  15. FLUCONAZOLE [Concomitant]
  16. DEXAMETHASONE [Concomitant]
  17. ANZEMET [Concomitant]
  18. AVELOX [Concomitant]
  19. SUCRALFATE [Concomitant]
  20. KAYEXALATE [Concomitant]
     Dosage: 1 APPLICATION PO AS DIRECTED
     Route: 048
  21. KETOROLAC TROMETHAMINE [Concomitant]
     Dosage: 10 MG, Q4-6H
     Route: 048
  22. PROMETHAZINE HYDROCHLORIDE [Concomitant]
     Indication: NAUSEA
     Dosage: 25 MG, AS NEEDED, Q 4H
  23. OXYCODONE [Concomitant]
     Indication: PAIN
     Dosage: 5 MG, AS NEEDED, Q3-4H
     Route: 048
  24. METHYLPREDNISOLONE [Concomitant]
     Dosage: 4 MG, 1X/DAY
     Route: 048
  25. PAMIDRONATE DISODIUM [Suspect]
     Indication: HYPERCALCAEMIA
     Dosage: 90 MG, UNK
     Dates: start: 20111025

REACTIONS (3)
  - Posterior reversible encephalopathy syndrome [Recovered/Resolved]
  - Nausea [Unknown]
  - Hypertension [Unknown]
